FAERS Safety Report 10669727 (Version 3)
Quarter: 2015Q1

REPORT INFORMATION
  Report Type: Spontaneous
  Country: CN (occurrence: CN)
  Receive Date: 20141222
  Receipt Date: 20150126
  Transmission Date: 20150720
  Serious: Yes (Life-Threatening)
  Sender: FDA-Public Use
  Company Number: CN-GLAXOSMITHKLINE-CN2014GSK038979

PATIENT

DRUGS (7)
  1. FENTANYL. [Concomitant]
     Active Substance: FENTANYL
     Indication: ANAESTHESIA
     Dosage: UNK
     Dates: start: 20141217
  2. ETOMIDATE. [Concomitant]
     Active Substance: ETOMIDATE
     Indication: ANAESTHESIA
     Dosage: UNK
     Dates: start: 20141217
  3. IODOPHOR [Concomitant]
     Active Substance: IODOPHOR
  4. ZINACEF [Suspect]
     Active Substance: CEFUROXIME SODIUM
     Indication: COLORECTAL CANCER
     Dosage: 1.5 G, UNK
     Route: 041
     Dates: start: 20141217, end: 20141217
  5. MUSCLE RELAXANTS [Concomitant]
     Active Substance: UNSPECIFIED INGREDIENT
     Indication: ANAESTHESIA
     Dosage: UNK
     Dates: start: 20141217
  6. MIDAZOLAM [Concomitant]
     Active Substance: MIDAZOLAM\MIDAZOLAM HYDROCHLORIDE
     Indication: ANAESTHESIA
     Dosage: UNK
     Dates: start: 20141217
  7. SODIUM CHLORIDE. [Suspect]
     Active Substance: SODIUM CHLORIDE
     Indication: PRODUCT USED FOR UNKNOWN INDICATION
     Dosage: 0.9% SOLUTION
     Route: 041
     Dates: start: 20141217, end: 20141217

REACTIONS (3)
  - Hypotension [Recovered/Resolved]
  - Flushing [Recovered/Resolved]
  - Product quality issue [Unknown]

NARRATIVE: CASE EVENT DATE: 20141217
